FAERS Safety Report 5347710-X (Version None)
Quarter: 2007Q2

REPORT INFORMATION
  Report Type: 
  Country: None (occurrence: None)
  Receive Date: 20070606
  Receipt Date: 20070530
  Transmission Date: 20071010
  Serious: Yes (Other)
  Sender: FDA-Public Use
  Company Number: AU-AVENTIS-200712697EU

PATIENT

DRUGS (3)
  1. CLEXANE [Suspect]
     Indication: PROPHYLAXIS
  2. PLAVIX [Suspect]
     Indication: PROPHYLAXIS
  3. ASPIRIN [Concomitant]

REACTIONS (1)
  - PULMONARY EMBOLISM [None]
